FAERS Safety Report 16766290 (Version 1)
Quarter: 2019Q3

REPORT INFORMATION
  Report Type: Spontaneous
  Country: DE (occurrence: DE)
  Receive Date: 20190903
  Receipt Date: 20190903
  Transmission Date: 20191005
  Serious: Yes (Other)
  Sender: FDA-Public Use
  Company Number: DE-PFIZER INC-2018488015

PATIENT
  Sex: Female

DRUGS (2)
  1. LYRICA [Suspect]
     Active Substance: PREGABALIN
     Indication: DEPRESSION
     Dosage: UNK
     Dates: end: 2018
  2. LYRICA [Suspect]
     Active Substance: PREGABALIN
     Indication: ANXIETY

REACTIONS (5)
  - Haemorrhage [Unknown]
  - Diarrhoea [Unknown]
  - Drug dependence [Unknown]
  - Vomiting [Unknown]
  - Dyspnoea [Unknown]
